FAERS Safety Report 5390607-X (Version None)
Quarter: 2007Q3

REPORT INFORMATION
  Report Type: 
  Country: None (occurrence: None)
  Receive Date: 20070718
  Receipt Date: 20070706
  Transmission Date: 20080115
  Serious: Yes (Other)
  Sender: FDA-Public Use
  Company Number: GB-PFIZER INC-2007056235

PATIENT
  Sex: Female

DRUGS (1)
  1. XALATAN [Suspect]
     Route: 047

REACTIONS (5)
  - ERYTHEMA [None]
  - EYE PAIN [None]
  - FACIAL PAIN [None]
  - OVERDOSE [None]
  - SWELLING FACE [None]
